FAERS Safety Report 10259613 (Version 1)
Quarter: 2014Q2

REPORT INFORMATION
  Report Type: Spontaneous
  Country: IN (occurrence: IN)
  Receive Date: 20140625
  Receipt Date: 20140625
  Transmission Date: 20141212
  Serious: Yes (Other)
  Sender: FDA-Public Use
  Company Number: IN-009507513-1406IND011102

PATIENT
  Age: 45 Year
  Sex: Female

DRUGS (2)
  1. JANUMET [Suspect]
     Indication: DIABETES MELLITUS
     Dosage: STRENGTH: 50/500 MG, QD
     Route: 048
  2. INSULIN [Concomitant]
     Indication: DIABETES MELLITUS

REACTIONS (2)
  - Breast cancer [Not Recovered/Not Resolved]
  - Bone cancer [Not Recovered/Not Resolved]
